FAERS Safety Report 20574085 (Version 1)
Quarter: 2022Q1

REPORT INFORMATION
  Report Type: Spontaneous
  Country: CN (occurrence: CN)
  Receive Date: 20220309
  Receipt Date: 20220309
  Transmission Date: 20220423
  Serious: Yes (Life-Threatening, Other)
  Sender: FDA-Public Use
  Company Number: CN-009507513-2203CHN001786

PATIENT
  Age: 73 Year
  Sex: Female

DRUGS (1)
  1. CANCIDAS [Suspect]
     Active Substance: CASPOFUNGIN ACETATE
     Indication: Pneumonia
     Dosage: DOSE: 50 MICROGRAM; FREQUENCY: ONCE/DAY (QD)
     Route: 041
     Dates: start: 20220122, end: 20220205

REACTIONS (3)
  - Hepatic failure [Recovering/Resolving]
  - Coronary artery disease [Unknown]
  - Incorrect dose administered [Unknown]

NARRATIVE: CASE EVENT DATE: 20220122
